FAERS Safety Report 10688025 (Version 1)
Quarter: 2015Q1

REPORT INFORMATION
  Report Type: Spontaneous
  Country: IT (occurrence: IT)
  Receive Date: 20150102
  Receipt Date: 20150102
  Transmission Date: 20150720
  Serious: Yes (Hospitalization)
  Sender: FDA-Public Use
  Company Number: IT-BAYER-2015-000260

PATIENT
  Age: 65 Year
  Sex: Female
  Weight: 51 kg

DRUGS (3)
  1. PARACETAMOL [Suspect]
     Active Substance: ACETAMINOPHEN
     Indication: INFLUENZA LIKE ILLNESS
     Dosage: 3 G, DAILY DOSE
     Route: 048
     Dates: start: 20141204, end: 20141209
  2. CODEINE [Suspect]
     Active Substance: CODEINE
     Indication: INFLUENZA LIKE ILLNESS
     Dosage: 90 MG, DAILY DOSE
     Route: 048
     Dates: start: 20141204, end: 20141209
  3. VALSARTAN. [Concomitant]
     Active Substance: VALSARTAN
     Dosage: 160 MG, DAILY DOSE
     Route: 048
     Dates: start: 20000101, end: 20141209

REACTIONS (1)
  - Hepatitis acute [Recovered/Resolved]

NARRATIVE: CASE EVENT DATE: 20141207
